FAERS Safety Report 13746330 (Version 4)
Quarter: 2018Q1

REPORT INFORMATION
  Report Type: Spontaneous
  Country: ES (occurrence: ES)
  Receive Date: 20170712
  Receipt Date: 20180124
  Transmission Date: 20180508
  Serious: Yes (Hospitalization)
  Sender: FDA-Public Use
  Company Number: ES-SA-2017SA123606

PATIENT
  Sex: Male
  Weight: 83 kg

DRUGS (5)
  1. LANTUS [Suspect]
     Active Substance: INSULIN GLARGINE
     Indication: TYPE 2 DIABETES MELLITUS
     Route: 058
     Dates: start: 2015, end: 20170627
  2. TOUJEO [Suspect]
     Active Substance: INSULIN GLARGINE
     Indication: TYPE 2 DIABETES MELLITUS
     Route: 058
     Dates: start: 20170628
  3. SOLOSTAR [Suspect]
     Active Substance: DEVICE
     Indication: TYPE 2 DIABETES MELLITUS
     Dates: start: 20170628
  4. TRULICITY [Concomitant]
     Active Substance: DULAGLUTIDE
     Indication: TYPE 2 DIABETES MELLITUS
     Dosage: DOSE:1-1-0 OR 1 WEEKLY
     Route: 058
  5. XIGDUO XR [Concomitant]
     Active Substance: DAPAGLIFLOZIN PROPANEDIOL\METFORMIN HYDROCHLORIDE
     Indication: TYPE 2 DIABETES MELLITUS
     Dosage: 1-1-0 OR QD
     Route: 048

REACTIONS (7)
  - Wound [Recovering/Resolving]
  - Peripheral vascular disorder [Recovering/Resolving]
  - Hypoglycaemia [Recovered/Resolved]
  - Depression [Not Recovered/Not Resolved]
  - Hyperglycaemia [Recovered/Resolved]
  - Respiratory disorder [Recovered/Resolved]
  - Fatigue [Unknown]
